FAERS Safety Report 5523873-8 (Version None)
Quarter: 2007Q4

REPORT INFORMATION
  Report Type: 
  Country: None (occurrence: None)
  Receive Date: 20071121
  Receipt Date: 20071115
  Transmission Date: 20080405
  Serious: Yes (Other)
  Sender: FDA-Public Use
  Company Number: US-SHR-US-2007-043542

PATIENT

DRUGS (1)
  1. FLUDARABINE FOR INJECTION [Suspect]

REACTIONS (1)
  - SYNCOPE [None]
